FAERS Safety Report 10797496 (Version 1)
Quarter: 2015Q1

REPORT INFORMATION
  Report Type: Spontaneous
  Country: IE (occurrence: IE)
  Receive Date: 20150216
  Receipt Date: 20150216
  Transmission Date: 20150721
  Serious: Yes (Other)
  Sender: FDA-Public Use
  Company Number: IE-ASTRAZENECA-2015SE12541

PATIENT
  Age: 39 Year
  Sex: Male

DRUGS (2)
  1. MARCAIN [Suspect]
     Active Substance: BUPIVACAINE HYDROCHLORIDE
     Indication: ROTATOR CUFF SYNDROME
     Dates: start: 20150122
  2. ADCORTYL [Suspect]
     Active Substance: TRIAMCINOLONE ACETONIDE
     Indication: ROTATOR CUFF SYNDROME
     Dosage: 10 MG/ML
     Dates: start: 20150122, end: 20150122

REACTIONS (1)
  - Soft tissue mass [Recovered/Resolved]

NARRATIVE: CASE EVENT DATE: 20150122
